FAERS Safety Report 6232031-3 (Version None)
Quarter: 2009Q2

REPORT INFORMATION
  Report Type: 
  Country: None (occurrence: None)
  Receive Date: 20090616
  Receipt Date: 20090601
  Transmission Date: 20091009
  Serious: Yes (Death, Other)
  Sender: FDA-Public Use
  Company Number: US-GENENTECH-284789

PATIENT

DRUGS (10)
  1. RITUXAN [Suspect]
     Indication: MANTLE CELL LYMPHOMA
     Dosage: 375 MG/M2, UNK
     Route: 042
  2. DOXORUBICIN HCL [Suspect]
     Indication: MANTLE CELL LYMPHOMA
     Dosage: 45 MG/M2, UNK
     Route: 042
  3. VINCRISTINE [Suspect]
     Indication: MANTLE CELL LYMPHOMA
     Dosage: 1.5 MG/M2, UNK
     Route: 065
  4. METHOTREXATE [Suspect]
     Indication: MANTLE CELL LYMPHOMA
     Route: 042
  5. LEUCOVORIN CALCIUM [Suspect]
     Indication: MANTLE CELL LYMPHOMA
     Route: 065
  6. CYTARABINE [Suspect]
     Indication: MANTLE CELL LYMPHOMA
     Route: 042
  7. ETOPOSIDE [Suspect]
     Indication: MANTLE CELL LYMPHOMA
     Dosage: 60 MG/M2, UNK
     Route: 065
  8. IFOSFAMIDE [Suspect]
     Indication: MANTLE CELL LYMPHOMA
     Route: 065
  9. THALIDOMIDE [Suspect]
     Indication: MANTLE CELL LYMPHOMA
     Dosage: 200 MG, UNK
     Route: 065
  10. MESNA [Suspect]
     Indication: MANTLE CELL LYMPHOMA
     Route: 065

REACTIONS (9)
  - ANAEMIA [None]
  - BACTERAEMIA [None]
  - MANTLE CELL LYMPHOMA [None]
  - NEOPLASM MALIGNANT [None]
  - NEUROPATHY PERIPHERAL [None]
  - NEUTROPENIA [None]
  - NON-SMALL CELL LUNG CANCER [None]
  - SEPSIS [None]
  - THROMBOCYTOPENIA [None]
